FAERS Safety Report 14852006 (Version 1)
Quarter: 2018Q2

REPORT INFORMATION
  Report Type: Spontaneous
  Country: US (occurrence: US)
  Receive Date: 20180420
  Receipt Date: 20180420
  Transmission Date: 20180711
  Serious: Yes (Other)
  Sender: FDA-Public Use
  Company Number: None

PATIENT
  Age: 71 Year
  Sex: Male
  Weight: 118.35 kg

DRUGS (10)
  1. MORPHINE [Concomitant]
     Active Substance: MORPHINE
  2. ALLOPURINOL. [Concomitant]
     Active Substance: ALLOPURINOL
  3. FASLODEX [Concomitant]
     Active Substance: FULVESTRANT
  4. ALHA LIPOIC ACID [Concomitant]
  5. LIVER [Concomitant]
     Active Substance: MAMMAL LIVER
  6. ZOMETA [Concomitant]
     Active Substance: ZOLEDRONIC ACID
  7. LISINOPRIL. [Concomitant]
     Active Substance: LISINOPRIL
  8. IBRANCE [Suspect]
     Active Substance: PALBOCICLIB
     Indication: BREAST CANCER
     Route: 048
     Dates: start: 20170622, end: 20180419
  9. FISH OIL [Concomitant]
     Active Substance: FISH OIL
  10. VITAMIN D [Concomitant]
     Active Substance: CHOLECALCIFEROL

REACTIONS (1)
  - Disease progression [None]
